FAERS Safety Report 5933730-0 (Version None)
Quarter: 2008Q4

REPORT INFORMATION
  Report Type: 
  Country: None (occurrence: None)
  Receive Date: 20081029
  Receipt Date: 20081027
  Transmission Date: 20090506
  Serious: Yes (Other)
  Sender: FDA-Public Use
  Company Number: US-BRISTOL-MYERS SQUIBB COMPANY-14385819

PATIENT

DRUGS (1)
  1. EFAVIRENZ [Suspect]

REACTIONS (2)
  - DRUG LEVEL INCREASED [None]
  - STATUS EPILEPTICUS [None]
